FAERS Safety Report 16980258 (Version 1)
Quarter: 2019Q4

REPORT INFORMATION
  Report Type: Spontaneous
  Country: CN (occurrence: CN)
  Receive Date: 20191031
  Receipt Date: 20191031
  Transmission Date: 20200122
  Serious: Yes (Life-Threatening)
  Sender: FDA-Public Use
  Company Number: CN-NOVOPROD-693551

PATIENT
  Age: 70 Year
  Sex: Male
  Weight: 65 kg

DRUGS (3)
  1. POTASSIUM CHLORIDE. [Suspect]
     Active Substance: POTASSIUM CHLORIDE
     Indication: SUPPLEMENTATION THERAPY
     Dosage: 15 ML, QD
     Route: 041
     Dates: start: 20191012, end: 20191012
  2. NOVORAPID [Suspect]
     Active Substance: INSULIN ASPART
     Indication: BLOOD GLUCOSE INCREASED
     Dosage: 10 IU, QD
     Route: 042
     Dates: start: 20191012, end: 20191012
  3. GLUCOSE INJECTION [Concomitant]
     Active Substance: DEXTROSE
     Dosage: 500 ML, QD
     Route: 042
     Dates: start: 20191012, end: 20191012

REACTIONS (5)
  - Pallor [Recovering/Resolving]
  - Blood pressure increased [Recovering/Resolving]
  - Tachypnoea [Recovering/Resolving]
  - Chills [Recovering/Resolving]
  - Tachycardia [Recovering/Resolving]

NARRATIVE: CASE EVENT DATE: 20191012
